FAERS Safety Report 13717268 (Version 1)
Quarter: 2017Q3

REPORT INFORMATION
  Report Type: Spontaneous
  Country: US (occurrence: US)
  Receive Date: 20170704
  Receipt Date: 20170704
  Transmission Date: 20171127
  Serious: Yes (Hospitalization)
  Sender: FDA-Public Use
  Company Number: None

PATIENT
  Age: 85 Year
  Sex: Male
  Weight: 73.84 kg

DRUGS (1)
  1. DALTEPARIN [Suspect]
     Active Substance: DALTEPARIN
     Indication: AORTIC VALVE REPLACEMENT
     Dosage: 10000 UNITS EVERY DAY SQ
     Route: 058
     Dates: start: 20110806, end: 20160928

REACTIONS (3)
  - Haemorrhage [None]
  - Haemoglobin decreased [None]
  - Haemorrhoids [None]

NARRATIVE: CASE EVENT DATE: 20151020
